FAERS Safety Report 5626940-3 (Version None)
Quarter: 2008Q1

REPORT INFORMATION
  Report Type: 
  Country: None (occurrence: None)
  Receive Date: 20080212
  Receipt Date: 20080130
  Transmission Date: 20080703
  Serious: Yes (Hospitalization)
  Sender: FDA-Public Use
  Company Number: M7001-02895-SPO-US

PATIENT
  Age: 57 Year
  Sex: Male

DRUGS (1)
  1. TARGRETIN [Suspect]
     Indication: ACUTE MYELOID LEUKAEMIA
     Dosage: 150 MG/M2,ORAL
     Route: 048

REACTIONS (7)
  - CIRCULATORY COLLAPSE [None]
  - EXERCISE TOLERANCE DECREASED [None]
  - NOCTURNAL DYSPNOEA [None]
  - ORTHOPNOEA [None]
  - PERICARDIAL EFFUSION [None]
  - PITTING OEDEMA [None]
  - RETINOIC ACID SYNDROME [None]
